FAERS Safety Report 4725024-6 (Version None)
Quarter: 2005Q3

REPORT INFORMATION
  Report Type: 
  Country: None (occurrence: None)
  Receive Date: 20050726
  Receipt Date: 20050621
  Transmission Date: 20060218
  Serious: Yes (Hospitalization)
  Sender: FDA-Public Use
  Company Number: 200515850GDDC

PATIENT
  Age: 62 Year
  Sex: Male

DRUGS (6)
  1. KETEK [Suspect]
     Indication: PNEUMONIA
     Route: 048
     Dates: start: 20050423, end: 20050429
  2. PHENYTOIN [Suspect]
     Indication: EPILEPSY
  3. ISTIN [Concomitant]
     Indication: HYPERTENSION
     Route: 048
  4. CARDURA [Concomitant]
     Indication: HYPERTENSION
     Route: 048
  5. ATENOLOL [Concomitant]
     Indication: HYPERTENSION
     Route: 048
  6. VALIUM [Concomitant]
     Indication: HYPERTENSION

REACTIONS (6)
  - ANGIONEUROTIC OEDEMA [None]
  - CONVULSION [None]
  - DRUG LEVEL CHANGED [None]
  - SWELLING FACE [None]
  - SWOLLEN TONGUE [None]
  - TREATMENT NONCOMPLIANCE [None]
